FAERS Safety Report 5806932-1 (Version None)
Quarter: 2008Q3

REPORT INFORMATION
  Report Type: 
  Country: None (occurrence: None)
  Receive Date: 20080711
  Receipt Date: 20080704
  Transmission Date: 20090109
  Serious: Yes (Other)
  Sender: FDA-Public Use
  Company Number: GB-JNJFOC-20080605929

PATIENT
  Age: 18 Year
  Sex: Female

DRUGS (2)
  1. RISPERDAL [Suspect]
     Indication: PSYCHOTIC DISORDER
     Route: 048
  2. RISPERDAL [Suspect]
     Indication: LEARNING DISORDER
     Route: 048

REACTIONS (2)
  - DEAFNESS NEUROSENSORY [None]
  - UVEITIS [None]
